FAERS Safety Report 23668183 (Version 1)
Quarter: 2024Q1

REPORT INFORMATION
  Report Type: Report from Study
  Country: FI (occurrence: FI)
  Receive Date: 20240325
  Receipt Date: 20240325
  Transmission Date: 20240409
  Serious: Yes (Hospitalization, Other)
  Sender: FDA-Public Use
  Company Number: FI-JNJFOC-20240285130

PATIENT
  Age: 56 Year
  Sex: Female
  Weight: 74 kg

DRUGS (10)
  1. REVATIO [Suspect]
     Active Substance: SILDENAFIL CITRATE
     Indication: Pulmonary arterial hypertension
     Dosage: 60 MILLIGRAM
     Route: 048
     Dates: start: 20210528, end: 20240124
  2. MACITENTAN [Suspect]
     Active Substance: MACITENTAN
     Indication: Pulmonary arterial hypertension
     Dosage: 10 MILLIGRAM, QD
     Route: 048
     Dates: start: 20210528, end: 20240123
  3. MYCOPHENOLATE MOFETIL [Concomitant]
     Active Substance: MYCOPHENOLATE MOFETIL
     Indication: Mixed connective tissue disease
     Dosage: UNK
     Route: 048
     Dates: start: 20210423
  4. PREDNISOLONE [Concomitant]
     Active Substance: PREDNISOLONE
     Indication: Mixed connective tissue disease
     Dosage: UNK
     Route: 048
     Dates: start: 20140203
  5. ALENDRONAT [Concomitant]
     Active Substance: ALENDRONATE SODIUM
     Indication: Osteoporosis
     Dosage: UNK
     Route: 048
     Dates: start: 20160412
  6. CALCIUM GLYCEROPHOSPHATE [Concomitant]
     Active Substance: CALCIUM GLYCEROPHOSPHATE
     Indication: Osteoporosis
     Dosage: UNK
     Route: 048
     Dates: start: 20160512
  7. ASPIRIN [Concomitant]
     Active Substance: ASPIRIN
     Indication: Mixed connective tissue disease
     Dosage: UNK
     Route: 048
     Dates: start: 20160101
  8. AMLODIPINE [Concomitant]
     Active Substance: AMLODIPINE BESYLATE
     Indication: Raynaud^s phenomenon
     Dosage: UNK
     Route: 048
     Dates: start: 20140101
  9. PANTOPRAZOLE [Concomitant]
     Active Substance: PANTOPRAZOLE
     Indication: Prophylaxis
     Dosage: UNK
     Route: 048
     Dates: start: 20160929
  10. HYDROXYCHLOROQUINE [Concomitant]
     Active Substance: HYDROXYCHLOROQUINE
     Indication: Mixed connective tissue disease
     Dosage: UNK
     Route: 048
     Dates: start: 20140827

REACTIONS (6)
  - Central nervous system lymphoma [Recovered/Resolved]
  - Pulmonary embolism [Unknown]
  - Pneumonia [Unknown]
  - Pyrexia [Unknown]
  - Hypotension [Unknown]
  - Vertigo [Not Recovered/Not Resolved]

NARRATIVE: CASE EVENT DATE: 20231122
